FAERS Safety Report 23839997 (Version 1)
Quarter: 2024Q2

REPORT INFORMATION
  Report Type: Spontaneous
  Country: FR (occurrence: FR)
  Receive Date: 20240510
  Receipt Date: 20240510
  Transmission Date: 20240716
  Serious: Yes (Life-Threatening, Hospitalization)
  Sender: FDA-Public Use
  Company Number: FR-AFSSAPS-PC2024000329

PATIENT
  Age: 28 Year
  Sex: Female

DRUGS (1)
  1. EPHEDRINE [Suspect]
     Active Substance: EPHEDRINE
     Indication: Product used for unknown indication
     Dosage: 24 MILLIGRAM (12 MG X 2 TO 3 MIN INTERVALS)
     Route: 042
     Dates: start: 20240410, end: 20240410

REACTIONS (1)
  - Stress cardiomyopathy [Recovering/Resolving]

NARRATIVE: CASE EVENT DATE: 20240410
